FAERS Safety Report 24640930 (Version 1)
Quarter: 2024Q4

REPORT INFORMATION
  Report Type: Report from Study
  Country: ES (occurrence: ES)
  Receive Date: 20241120
  Receipt Date: 20241120
  Transmission Date: 20250115
  Serious: Yes (Hospitalization)
  Sender: Y-MABS THERAPEUTICS
  Company Number: ES-Y-MABS THERAPEUTICS, INC.-COM2022-ES-000992

PATIENT

DRUGS (3)
  1. NAXITAMAB [Suspect]
     Active Substance: NAXITAMAB
     Indication: Neuroblastoma
     Dosage: CYCLE 1, DOSE 1
     Route: 042
     Dates: start: 20221114, end: 20221114
  2. NAXITAMAB [Suspect]
     Active Substance: NAXITAMAB
     Dosage: CYCLE 2, DOSE 2 (3 MILLIGRAM/KILOGRAM)
     Route: 042
     Dates: start: 20221214, end: 20221214
  3. GRANULOCYTE-MACROPHAGE COLONY-STIMULATING FACTOR [Suspect]
     Active Substance: GRANULOCYTE-MACROPHAGE COLONY-STIMULATING FACTOR
     Indication: Neuroblastoma
     Dosage: CYCLE 2, DOSE 3 (500 MICROGRAM/SQ. METER)
     Route: 058
     Dates: start: 20221214, end: 20221214

REACTIONS (1)
  - Bronchospasm [Recovered/Resolved]

NARRATIVE: CASE EVENT DATE: 20221214
